FAERS Safety Report 8765817 (Version 2)
Quarter: 2012Q4

REPORT INFORMATION
  Report Type: 
  Country: US (occurrence: US)
  Receive Date: 20120904
  Receipt Date: 20121022
  Transmission Date: 20130627
  Serious: No
  Sender: FDA-Public Use
  Company Number: US-PFIZER INC-2012214218

PATIENT
  Age: 43 Year

DRUGS (4)
  1. MORPHINE SULFATE [Suspect]
     Dosage: UNK
  2. LEVOTHYROXINE SODIUM [Suspect]
     Dosage: UNK
  3. CODEINE [Suspect]
     Dosage: UNK
  4. ALLEGRA [Suspect]
     Dosage: 60 mg, UNK

REACTIONS (1)
  - Drug hypersensitivity [Unknown]
